FAERS Safety Report 5066532-0 (Version None)
Quarter: 2006Q3

REPORT INFORMATION
  Report Type: 
  Country: None (occurrence: None)
  Receive Date: 20060728
  Receipt Date: 20060717
  Transmission Date: 20061208
  Serious: Yes (Hospitalization)
  Sender: FDA-Public Use
  Company Number: 14418

PATIENT
  Age: 56 Year
  Sex: Male
  Weight: 101.36 kg

DRUGS (6)
  1. FLUOROURACIL [Suspect]
     Indication: COLORECTAL CANCER
     Dosage: 6188 MG PER_CYCLE IV
     Route: 042
     Dates: start: 20060411, end: 20060413
  2. LEUCOVORIN CALCIUM [Suspect]
     Indication: COLORECTAL CANCER
     Dosage: 884 MG PER_CYCLE IV
     Route: 042
     Dates: start: 20060411, end: 20060411
  3. ELOXATIN [Suspect]
     Indication: COLORECTAL CANCER
     Dosage: 188 MG PER_CYCLE IV
     Route: 042
     Dates: start: 20060411, end: 20060411
  4. AVASTIN [Suspect]
     Indication: COLORECTAL CANCER
     Dosage: 507 MG PER_CYCLE IV
     Route: 042
     Dates: start: 20060411, end: 20060411
  5. OXYCONTIN [Concomitant]
  6. OXYCODONE HCL [Concomitant]

REACTIONS (5)
  - ABDOMINAL PAIN [None]
  - CONSTIPATION [None]
  - ILEUS [None]
  - NAUSEA [None]
  - VOMITING [None]
